FAERS Safety Report 9168425 (Version 1)
Quarter: 2013Q1

REPORT INFORMATION
  Report Type: Spontaneous
  Country: GB (occurrence: None)
  Receive Date: 20130307
  Receipt Date: 20130307
  Transmission Date: 20140127
  Serious: Yes (Other)
  Sender: FDA-Public Use
  Company Number: 2013-03133

PATIENT
  Sex: Female

DRUGS (10)
  1. GABAPENTIN (GABAPENTIN) [Suspect]
     Dates: start: 20121114
  2. PREDNISOLONE (PREDNISOLONE) [Concomitant]
  3. BRIMONIDINE (BRIMONIDINE) [Concomitant]
  4. FLUTICASONE PROPIONATE (FLUTICASONE PROPIONATE) [Concomitant]
  5. CETIRIZINE (CETIRIZINE) [Concomitant]
  6. VITAMIN D3 (COLECALCIFEROL) [Concomitant]
  7. COD LIVER OIL (COD LIVER OIL) [Concomitant]
  8. PAROXETINE (PAROXETINE) [Concomitant]
  9. SALAMOL [Concomitant]
  10. SYMBICORT [Suspect]

REACTIONS (2)
  - Asthma [None]
  - Therapeutic response unexpected [None]
